FAERS Safety Report 18401664 (Version 1)
Quarter: 2020Q4

REPORT INFORMATION
  Report Type: Spontaneous
  Country: GB (occurrence: GB)
  Receive Date: 20201020
  Receipt Date: 20201020
  Transmission Date: 20210114
  Serious: Yes (Hospitalization, Other)
  Sender: FDA-Public Use
  Company Number: GB-AUROBINDO-AUR-APL-2020-052229

PATIENT
  Age: 42 Year
  Sex: Male

DRUGS (2)
  1. PARACETAMOL [Suspect]
     Active Substance: ACETAMINOPHEN
     Indication: LOWER RESPIRATORY TRACT INFECTION
     Dosage: 1 GRAM (6 DOSES, OVER A PERIOD OF 4 DAYS)
     Route: 042
  2. PARACETAMOL [Suspect]
     Active Substance: ACETAMINOPHEN
     Indication: MUSCULAR DYSTROPHY
     Dosage: 1 GRAM (6 DOSES, OVER A PERIOD OF 4 DAYS)

REACTIONS (2)
  - Acute hepatic failure [Unknown]
  - Encephalopathy [Unknown]
